FAERS Safety Report 5804498-3 (Version None)
Quarter: 2008Q3

REPORT INFORMATION
  Report Type: 
  Country: None (occurrence: None)
  Receive Date: 20080709
  Receipt Date: 20080704
  Transmission Date: 20090109
  Serious: Yes (Hospitalization)
  Sender: FDA-Public Use
  Company Number: B0528389A

PATIENT
  Age: 86 Year
  Sex: Female

DRUGS (6)
  1. CEFUROXIME [Suspect]
     Indication: UPPER RESPIRATORY TRACT INFECTION
     Route: 048
     Dates: start: 20061101, end: 20061101
  2. ALOPURINOL [Concomitant]
     Indication: DRUG USE FOR UNKNOWN INDICATION
     Route: 065
  3. ATARAX [Concomitant]
  4. FUROSEMIDE [Concomitant]
  5. SERETIDE [Concomitant]
  6. VENTOLIN [Concomitant]

REACTIONS (1)
  - PEMPHIGOID [None]
